FAERS Safety Report 16479222 (Version 1)
Quarter: 2019Q2

REPORT INFORMATION
  Report Type: Spontaneous
  Country: US (occurrence: US)
  Receive Date: 20190626
  Receipt Date: 20190626
  Transmission Date: 20190711
  Serious: Yes (Other)
  Sender: FDA-Public Use
  Company Number: US-SAOL THERAPEUTICS-2019SAO00028

PATIENT
  Age: 67 Year
  Sex: Female
  Weight: 86.8 kg

DRUGS (5)
  1. MORPHINE [Suspect]
     Active Substance: MORPHINE
     Dosage: UNK UNK, \DAY; TURNED DOWN TO MIN RATE
     Route: 037
     Dates: start: 20190117
  2. MORPHINE [Suspect]
     Active Substance: MORPHINE
     Dosage: 5 MG
  3. LIORESAL [Suspect]
     Active Substance: BACLOFEN
     Dosage: 177.23 ?G, \DAY
     Route: 037
     Dates: end: 20190117
  4. LIORESAL [Suspect]
     Active Substance: BACLOFEN
     Dosage: UNK UNK, \DAYDOSE TURNED DOWN TO MINIMAL RATE
     Route: 037
     Dates: end: 20190117
  5. MORPHINE [Suspect]
     Active Substance: MORPHINE
     Dosage: 29.53 MG, \DAY
     Dates: end: 20190117

REACTIONS (3)
  - Device failure [Recovered/Resolved]
  - Pain [Not Recovered/Not Resolved]
  - Excessive granulation tissue [Recovered/Resolved]

NARRATIVE: CASE EVENT DATE: 20181230
